FAERS Safety Report 8793357 (Version 1)
Quarter: 2012Q4

REPORT INFORMATION
  Report Type: 
  Country: US (occurrence: US)
  Receive Date: 20120918
  Receipt Date: 20120918
  Transmission Date: 20130627
  Serious: Yes (Disabling, Other)
  Sender: FDA-Public Use
  Company Number: PHHY2012US079862

PATIENT
  Age: 60 Year
  Sex: Female

DRUGS (2)
  1. ARIPIPRAZOLE [Suspect]
     Indication: MAJOR DEPRESSION
     Dosage: 5 mg/day
     Dates: start: 201102
  2. LAMOTRIGINE [Interacting]
     Indication: MAJOR DEPRESSION
     Dosage: 300 mg/day

REACTIONS (2)
  - Intention tremor [Recovered/Resolved]
  - Drug interaction [Unknown]
